FAERS Safety Report 13575004 (Version 1)
Quarter: 2017Q2

REPORT INFORMATION
  Report Type: Spontaneous
  Country: NO (occurrence: NO)
  Receive Date: 20170523
  Receipt Date: 20170523
  Transmission Date: 20170830
  Serious: Yes (Other)
  Sender: FDA-Public Use
  Company Number: NO-ASTRAZENECA-2017SE52344

PATIENT
  Sex: Female
  Weight: 53 kg

DRUGS (2)
  1. ZOLADEX [Suspect]
     Active Substance: GOSERELIN ACETATE
     Indication: CANCER HORMONAL THERAPY
     Route: 058
     Dates: start: 20160301
  2. ZOLADEX [Suspect]
     Active Substance: GOSERELIN ACETATE
     Indication: CANCER HORMONAL THERAPY
     Route: 058
     Dates: start: 20160301

REACTIONS (2)
  - Suicidal ideation [Recovering/Resolving]
  - Major depression [Recovering/Resolving]
